FAERS Safety Report 7936133-2 (Version None)
Quarter: 2011Q4

REPORT INFORMATION
  Report Type: 
  Country: None (occurrence: None)
  Receive Date: 20111123
  Receipt Date: 20111116
  Transmission Date: 20120403
  Serious: Yes (Other)
  Sender: FDA-Public Use
  Company Number: JP-BRISTOL-MYERS SQUIBB COMPANY-16239253

PATIENT
  Age: 77 Year
  Sex: Female

DRUGS (12)
  1. OLMESARTAN MEDOXOMIL [Concomitant]
  2. NORVASC [Concomitant]
  3. ALENDRONATE SODIUM [Concomitant]
  4. OPALMON [Concomitant]
  5. JANUVIA [Concomitant]
  6. ALLOPURINOL [Concomitant]
  7. PRAVASTATIN SODIUM [Concomitant]
  8. MIGLITOL [Concomitant]
  9. METFORMIN HCL [Suspect]
     Indication: DIABETES MELLITUS
     Route: 048
     Dates: start: 20110901
  10. ASPIRIN [Concomitant]
  11. MOBIC [Concomitant]
  12. METFORMIN HCL [Concomitant]
     Indication: DIABETES MELLITUS
     Dates: end: 20110901

REACTIONS (1)
  - PLATELET COUNT DECREASED [None]
